FAERS Safety Report 24929864 (Version 6)
Quarter: 2025Q4

REPORT INFORMATION
  Report Type: Spontaneous
  Country: US (occurrence: US)
  Receive Date: 20250205
  Receipt Date: 20251014
  Transmission Date: 20260118
  Serious: Yes (Death, Other)
  Sender: SANOFI AVENTIS
  Company Number: US-SA-2025SA035128

PATIENT
  Age: 79 Year
  Sex: Female

DRUGS (26)
  1. REZUROCK [Suspect]
     Active Substance: BELUMOSUDIL
     Indication: Chronic graft versus host disease
     Dosage: 200 MG, QD
     Route: 048
     Dates: start: 20220609
  2. ACYCLOVIR [Concomitant]
     Active Substance: ACYCLOVIR
     Dosage: UNK
  3. BACTRIM DS [Concomitant]
     Active Substance: SULFAMETHOXAZOLE\TRIMETHOPRIM
     Dosage: UNK
  4. CARVEDILOL [Concomitant]
     Active Substance: CARVEDILOL
     Dosage: UNK
  5. CARVEDILOL [Concomitant]
     Active Substance: CARVEDILOL
  6. CODEINE SULFATE [Concomitant]
     Active Substance: CODEINE SULFATE
     Dosage: UNK
  7. DOXYCYCLINE HYCLATE [Concomitant]
     Active Substance: DOXYCYCLINE HYCLATE
     Dosage: UNK
  8. ELIQUIS [Concomitant]
     Active Substance: APIXABAN
     Dosage: UNK
  9. FLONASE [Concomitant]
     Active Substance: FLUTICASONE PROPIONATE
     Dosage: UNK
  10. FLUCONAZOLE [Concomitant]
     Active Substance: FLUCONAZOLE
     Dosage: UNK
  11. FOLIC ACID [Concomitant]
     Active Substance: FOLIC ACID
     Dosage: UNK
  12. JAKAFI [Concomitant]
     Active Substance: RUXOLITINIB
     Dosage: UNK
  13. MIDODRINE [Concomitant]
     Active Substance: MIDODRINE
     Dosage: UNK
  14. VITAMINS [Concomitant]
     Active Substance: VITAMINS
     Dosage: UNK
  15. MYCOPHENOLIC ACID [Concomitant]
     Active Substance: MYCOPHENOLIC ACID
     Dosage: UNK
  16. POTASSIUM CHLORATE [Concomitant]
     Active Substance: POTASSIUM CHLORATE
     Dosage: UNK
  17. PREDNISONE [Concomitant]
     Active Substance: PREDNISONE
     Dosage: UNK
  18. TRAMADOL [Concomitant]
     Active Substance: TRAMADOL
     Dosage: UNK
  19. URSODIOL [Concomitant]
     Active Substance: URSODIOL
     Dosage: UNK
  20. AZELASTINE HYDROCHLORIDE [Concomitant]
     Active Substance: AZELASTINE HYDROCHLORIDE
     Dosage: UNK
  21. CODEINE [Concomitant]
     Active Substance: CODEINE
     Dosage: UNK
  22. POTASSIUM [Concomitant]
     Active Substance: POTASSIUM
     Dosage: UNK
  23. PROTONIX [Concomitant]
     Active Substance: PANTOPRAZOLE SODIUM
     Dosage: UNK
  24. AUGMENTIN [Concomitant]
     Active Substance: AMOXICILLIN\CLAVULANATE POTASSIUM
     Dosage: UNK
  25. AZELASTINE [Concomitant]
     Active Substance: AZELASTINE
  26. PEPCID AC [Concomitant]
     Active Substance: FAMOTIDINE

REACTIONS (7)
  - Death [Fatal]
  - Weight increased [Not Recovered/Not Resolved]
  - Nasopharyngitis [Not Recovered/Not Resolved]
  - Vomiting [Not Recovered/Not Resolved]
  - Cough [Unknown]
  - Dysphagia [Not Recovered/Not Resolved]
  - Inappropriate schedule of product administration [Unknown]

NARRATIVE: CASE EVENT DATE: 20220609
